FAERS Safety Report 9571470 (Version 1)
Quarter: 2013Q4

REPORT INFORMATION
  Report Type: Report from Study
  Country: US (occurrence: US)
  Receive Date: 20131001
  Receipt Date: 20131001
  Transmission Date: 20140711
  Serious: Yes (Hospitalization, Other)
  Sender: FDA-Public Use
  Company Number: US-ALEXION PHARMACEUTICALS INC.-A201202647

PATIENT
  Sex: Female

DRUGS (1)
  1. SOLIRIS [Suspect]
     Indication: HAEMOLYTIC URAEMIC SYNDROME
     Dosage: UNK
     Route: 042

REACTIONS (10)
  - Transplant rejection [Unknown]
  - Gastrointestinal haemorrhage [Recovered/Resolved]
  - Acute respiratory distress syndrome [Unknown]
  - Clostridium difficile colitis [Unknown]
  - Staphylococcal infection [Unknown]
  - Candida infection [Unknown]
  - Pneumonia [Unknown]
  - Transaminases increased [Unknown]
  - Orthostatic hypotension [Unknown]
  - Anuria [Unknown]
